FAERS Safety Report 8811264 (Version 1)
Quarter: 2012Q4

REPORT INFORMATION
  Report Type: 
  Country: US (occurrence: None)
  Receive Date: 20120924
  Receipt Date: 20120924
  Transmission Date: 20130627
  Serious: Yes (Death, Hospitalization)
  Sender: FDA-Public Use
  Company Number: 2012ST000669

PATIENT
  Age: 91 Year
  Sex: Male

DRUGS (2)
  1. MATULANE CAPSULES [Suspect]
     Indication: MANTLE CELL LYMPHOMA
     Route: 048
     Dates: start: 20120814, end: 20120918
  2. PROCHLORPERAZINE [Concomitant]

REACTIONS (6)
  - Pyrexia [None]
  - Local swelling [None]
  - Oedema peripheral [None]
  - Oedema peripheral [None]
  - Dyspnoea [None]
  - Atrial fibrillation [None]
